FAERS Safety Report 9669192 (Version 1)
Quarter: 2013Q4

REPORT INFORMATION
  Report Type: Spontaneous
  Country: US (occurrence: US)
  Receive Date: 20131105
  Receipt Date: 20131105
  Transmission Date: 20140711
  Serious: Yes (Hospitalization)
  Sender: FDA-Public Use
  Company Number: US-BIOMARINAP-US-2013-101819

PATIENT
  Age: 16 Year
  Sex: Female
  Weight: 46.5 kg

DRUGS (5)
  1. NAGLAZYME [Suspect]
     Indication: MUCOPOLYSACCHARIDOSIS VI
     Dosage: 45 MG, QW
     Route: 041
     Dates: start: 201202
  2. LORATADINE [Concomitant]
     Indication: PREMEDICATION
     Dosage: 10 MG, UNK
  3. TYLENOL                            /00020001/ [Concomitant]
     Indication: PREMEDICATION
     Dosage: 500 MG, UNK
  4. NASONEX [Concomitant]
     Indication: PRODUCT USED FOR UNKNOWN INDICATION
  5. NAPROXIN                           /00256201/ [Concomitant]
     Indication: PRODUCT USED FOR UNKNOWN INDICATION
     Dosage: 220 MG, BID
     Route: 048

REACTIONS (1)
  - Carpal tunnel syndrome [Not Recovered/Not Resolved]
